FAERS Safety Report 5495899-4 (Version None)
Quarter: 2007Q4

REPORT INFORMATION
  Report Type: 
  Country: None (occurrence: None)
  Receive Date: 20071025
  Receipt Date: 20070116
  Transmission Date: 20080405
  Serious: No
  Sender: FDA-Public Use
  Company Number: A0627017A

PATIENT
  Age: 71 Year

DRUGS (3)
  1. ADVAIR DISKUS 100/50 [Suspect]
     Indication: ASTHMA
     Route: 055
     Dates: start: 20000101
  2. ZYRTEC [Concomitant]
  3. VITAMINS [Concomitant]

REACTIONS (5)
  - CARDIAC DISORDER [None]
  - CARDIAC FIBRILLATION [None]
  - DYSPNOEA [None]
  - HEART RATE IRREGULAR [None]
  - PHARMACEUTICAL PRODUCT COMPLAINT [None]
